FAERS Safety Report 23513345 (Version 1)
Quarter: 2024Q1

REPORT INFORMATION
  Report Type: Spontaneous
  Country: US (occurrence: US)
  Receive Date: 20240212
  Receipt Date: 20240212
  Transmission Date: 20240409
  Serious: No
  Sender: FDA-Public Use
  Company Number: US-RECORDATI RARE DISEASE INC.-2023003116

PATIENT
  Age: 30 Year
  Sex: Female

DRUGS (1)
  1. PANHEMATIN [Suspect]
     Active Substance: HEMIN
     Indication: Porphyria acute
     Dosage: 4 MILLIGRAM/KILOGRAM, SINGLE
     Route: 065

REACTIONS (5)
  - Fatigue [Unknown]
  - Hypersomnia [Unknown]
  - Sleep disorder [Unknown]
  - Insomnia [Unknown]
  - Headache [Unknown]
